FAERS Safety Report 19479026 (Version 1)
Quarter: 2021Q2

REPORT INFORMATION
  Report Type: Spontaneous
  Country: PT (occurrence: PT)
  Receive Date: 20210630
  Receipt Date: 20210630
  Transmission Date: 20210717
  Serious: Yes (Death)
  Sender: FDA-Public Use
  Company Number: PT-PFIZER INC-2021795594

PATIENT
  Age: 65 Year
  Sex: Male

DRUGS (3)
  1. METHYLPREDNISOLONE SODIUM SUCCINATE. [Suspect]
     Active Substance: METHYLPREDNISOLONE SODIUM SUCCINATE
     Dosage: 2 MG/KG, DAILY
  2. METHYLPREDNISOLONE SODIUM SUCCINATE. [Suspect]
     Active Substance: METHYLPREDNISOLONE SODIUM SUCCINATE
     Indication: PNEUMONITIS
     Dosage: 1 MG/KG, DAILY
  3. INFLIXIMAB [Suspect]
     Active Substance: INFLIXIMAB
     Indication: PNEUMONITIS
     Dosage: 5 MG/KG

REACTIONS (4)
  - Condition aggravated [Fatal]
  - Off label use [Unknown]
  - Drug ineffective for unapproved indication [Unknown]
  - Pneumonitis [Fatal]
